FAERS Safety Report 10505770 (Version 1)
Quarter: 2014Q4

REPORT INFORMATION
  Report Type: Spontaneous
  Country: US (occurrence: US)
  Receive Date: 20141008
  Receipt Date: 20141008
  Transmission Date: 20150528
  Serious: Yes (Other)
  Sender: FDA-Public Use
  Company Number: PHHY2014US128264

PATIENT
  Age: 43 Year
  Sex: Male

DRUGS (4)
  1. REMICADE [Suspect]
     Active Substance: INFLIXIMAB
     Dosage: 10 MG/KG, EVERY 6 WEEKS
     Route: 065
  2. AZATHIOPRINE. [Suspect]
     Active Substance: AZATHIOPRINE
     Indication: CROHN^S DISEASE
     Dosage: 400 MG, PER DAY
     Route: 065
  3. REMICADE [Suspect]
     Active Substance: INFLIXIMAB
     Indication: CROHN^S DISEASE
     Dosage: 10 MG/KG, EVERY 8 WEEKS
     Route: 065
  4. PREDNISONE. [Suspect]
     Active Substance: PREDNISONE
     Indication: CROHN^S DISEASE
     Dosage: 40 MG, PER DAY
     Route: 065

REACTIONS (10)
  - Odynophagia [Recovering/Resolving]
  - Dysphonia [Recovering/Resolving]
  - Epiglottic erythema [Recovering/Resolving]
  - Epiglottitis [Recovering/Resolving]
  - Histoplasmosis disseminated [Recovering/Resolving]
  - Epiglottic oedema [Recovering/Resolving]
  - Pyrexia [Recovering/Resolving]
  - Crohn^s disease [Unknown]
  - Gastrointestinal haemorrhage [Unknown]
  - Dehydration [Recovering/Resolving]
